FAERS Safety Report 8632021 (Version 3)
Quarter: 2012Q4

REPORT INFORMATION
  Report Type: 
  Country: US (occurrence: US)
  Receive Date: 20120625
  Receipt Date: 20121108
  Transmission Date: 20130627
  Serious: Yes (Disabling, Other)
  Sender: FDA-Public Use
  Company Number: PHEH2012US011324

PATIENT
  Age: 38 Year
  Sex: Female

DRUGS (8)
  1. FANAPT [Suspect]
     Indication: PSYCHOTIC DISORDER
     Dosage: 12 mg, BID
     Route: 048
     Dates: start: 20111019
  2. FANAPT [Suspect]
     Dosage: 12 mg, QHS
     Route: 048
     Dates: start: 20120531, end: 20120614
  3. CLONAZEPAM [Concomitant]
     Dosage: UNK UKN, UNK
     Dates: end: 20120515
  4. LEXAPRO [Concomitant]
     Indication: ANXIETY
     Dosage: 40 mg, UNK
     Route: 048
     Dates: start: 20110607
  5. LATUDA [Concomitant]
     Dosage: UNK UKN, UNK
     Dates: start: 20120627
  6. LORAZEPAM [Concomitant]
  7. KEPPRA [Concomitant]
  8. AMBIEN [Concomitant]

REACTIONS (10)
  - Fall [Not Recovered/Not Resolved]
  - Extrapyramidal disorder [Recovering/Resolving]
  - Balance disorder [Not Recovered/Not Resolved]
  - Gait disturbance [Recovering/Resolving]
  - Abasia [Recovering/Resolving]
  - Tremor [Unknown]
  - Ataxia [Unknown]
  - Cogwheel rigidity [Recovering/Resolving]
  - Anxiety [Unknown]
  - Musculoskeletal stiffness [Unknown]
